FAERS Safety Report 22260815 (Version 1)
Quarter: 2023Q2

REPORT INFORMATION
  Report Type: Spontaneous
  Country: US (occurrence: None)
  Receive Date: 20230425
  Receipt Date: 20230425
  Transmission Date: 20230721
  Serious: No
  Sender: FDA-Public Use
  Company Number: None

PATIENT
  Sex: Female

DRUGS (1)
  1. LENALIDOMIDE [Suspect]
     Active Substance: LENALIDOMIDE
     Indication: Plasma cell myeloma
     Dosage: TAKE ONE 5MG CAPSULE AND ONE 2.5MG CAPSULE (TOTAL 7.5MG) ONCE DAILY FOR 21 DAYS ON AND 7 DAYS OFF
     Dates: start: 202303

REACTIONS (2)
  - Diarrhoea [None]
  - Drug ineffective [None]
